FAERS Safety Report 6785271-9 (Version None)
Quarter: 2010Q2

REPORT INFORMATION
  Report Type: 
  Country: None (occurrence: None)
  Receive Date: 20100623
  Receipt Date: 20100412
  Transmission Date: 20101027
  Serious: Yes (Hospitalization, Other)
  Sender: FDA-Public Use
  Company Number: US-ASTRAZENECA-2006UW07077

PATIENT
  Age: 455 Month
  Sex: Female
  Weight: 90.7 kg

DRUGS (33)
  1. SEROQUEL [Suspect]
     Indication: DEPRESSION
     Route: 048
     Dates: start: 19970101, end: 20050101
  2. SEROQUEL [Suspect]
     Indication: SLEEP DISORDER
     Route: 048
     Dates: start: 19970101, end: 20050101
  3. SEROQUEL [Suspect]
     Route: 048
     Dates: start: 20021121
  4. SEROQUEL [Suspect]
     Route: 048
     Dates: start: 20021121
  5. SEROQUEL [Suspect]
     Route: 048
     Dates: start: 20030818
  6. SEROQUEL [Suspect]
     Route: 048
     Dates: start: 20030818
  7. SEROQUEL [Suspect]
     Route: 048
     Dates: start: 20040304
  8. SEROQUEL [Suspect]
     Route: 048
     Dates: start: 20040304
  9. SEROQUEL [Suspect]
     Route: 048
     Dates: start: 20020329
  10. SEROQUEL [Suspect]
     Route: 048
     Dates: start: 20020329
  11. ZYPREXA [Suspect]
     Indication: DEPRESSION
     Route: 048
     Dates: start: 19990601
  12. ZYPREXA [Suspect]
     Indication: SLEEP DISORDER
     Route: 048
     Dates: start: 19990601
  13. ZYPREXA [Suspect]
     Route: 048
     Dates: start: 19990624
  14. ZYPREXA [Suspect]
     Route: 048
     Dates: start: 19990624
  15. RISPERDAL [Suspect]
     Indication: DEPRESSION
     Route: 048
     Dates: start: 20010101
  16. RISPERDAL [Suspect]
     Indication: SLEEP DISORDER
     Route: 048
     Dates: start: 20010101
  17. RISPERDAL [Suspect]
     Route: 048
     Dates: start: 20011018
  18. RISPERDAL [Suspect]
     Route: 048
     Dates: start: 20011018
  19. METHADONE [Concomitant]
     Dates: start: 20031113
  20. PROZAC [Concomitant]
     Dates: start: 20041119
  21. PROZAC [Concomitant]
     Route: 048
     Dates: start: 20020329
  22. COUMADIN [Concomitant]
     Dates: start: 20040514
  23. ZELNORM [Concomitant]
     Dates: start: 20041119
  24. PHENERGAN [Concomitant]
     Dates: start: 20041119
  25. ADVAIR DISKUS 100/50 [Concomitant]
     Dates: start: 20041119
  26. METOPROLOL TARTRATE [Concomitant]
     Dates: start: 20041119
  27. COMBIVENT [Concomitant]
     Dates: start: 20041119
  28. NEURONTIN [Concomitant]
     Dates: start: 20041119
  29. NEXIUM [Concomitant]
     Dates: start: 20041119
  30. ZANAFLEX [Concomitant]
     Dates: start: 20041119
  31. PERCOCET [Concomitant]
     Dates: start: 20031113
  32. PROCRIT [Concomitant]
     Dates: start: 20040514
  33. TETRACYCLINE [Concomitant]
     Dates: start: 20000228

REACTIONS (7)
  - DIABETES MELLITUS [None]
  - INSULIN-REQUIRING TYPE 2 DIABETES MELLITUS [None]
  - PANCREATITIS [None]
  - PANCREATITIS ACUTE [None]
  - PANCREATITIS CHRONIC [None]
  - PANCREATITIS RELAPSING [None]
  - TYPE 1 DIABETES MELLITUS [None]
